FAERS Safety Report 9124162 (Version 1)
Quarter: 2013Q1

REPORT INFORMATION
  Report Type: Spontaneous
  Country: IN (occurrence: IN)
  Receive Date: 20130227
  Receipt Date: 20130227
  Transmission Date: 20140127
  Serious: Yes (Other)
  Sender: FDA-Public Use
  Company Number: IN-UCBSA-078861

PATIENT
  Sex: Male

DRUGS (1)
  1. LEVETIRACETAM [Suspect]
     Dosage: UNKNOWN DOSE

REACTIONS (3)
  - Depression [Recovering/Resolving]
  - Major depression [Recovering/Resolving]
  - Intentional self-injury [Recovering/Resolving]
